FAERS Safety Report 9613241 (Version 2)
Quarter: 2013Q4

REPORT INFORMATION
  Report Type: Spontaneous
  Country: IT (occurrence: IT)
  Receive Date: 20131010
  Receipt Date: 20131023
  Transmission Date: 20140711
  Serious: Yes (Other)
  Sender: FDA-Public Use
  Company Number: IT-GLAXOSMITHKLINE-B0928919A

PATIENT
  Age: 6 Year
  Sex: Male

DRUGS (1)
  1. BACTROBAN [Suspect]
     Indication: INFLAMMATION OF WOUND
     Route: 061
     Dates: start: 20130926

REACTIONS (3)
  - Respiratory disorder [Not Recovered/Not Resolved]
  - Respiratory disorder [Not Recovered/Not Resolved]
  - Accidental exposure to product [Unknown]
